FAERS Safety Report 16738528 (Version 1)
Quarter: 2019Q3

REPORT INFORMATION
  Report Type: Spontaneous
  Country: JP (occurrence: JP)
  Receive Date: 20190826
  Receipt Date: 20190826
  Transmission Date: 20191005
  Serious: Yes (Other)
  Sender: FDA-Public Use
  Company Number: JP-ROCHE-2388124

PATIENT
  Age: 85 Year
  Sex: Female

DRUGS (3)
  1. ALECENSA [Suspect]
     Active Substance: ALECTINIB HYDROCHLORIDE
     Indication: NON-SMALL CELL LUNG CANCER
     Dosage: DOSAGE IS UNCERTAIN.
     Route: 048
  2. LORBRENA [Concomitant]
     Active Substance: LORLATINIB
     Dosage: DOSE INTERVAL UNCERTAINTY
     Route: 048
  3. LORBRENA [Concomitant]
     Active Substance: LORLATINIB
     Dosage: DOSE INTERVAL UNCERTAINTY
     Route: 048

REACTIONS (2)
  - Neoplasm progression [Unknown]
  - Non-small cell lung cancer [Unknown]
